APPROVED DRUG PRODUCT: BISOPROLOL FUMARATE
Active Ingredient: BISOPROLOL FUMARATE
Strength: 10MG
Dosage Form/Route: TABLET;ORAL
Application: A217617 | Product #002 | TE Code: AB
Applicant: HARMAN FINOCHEM LTD
Approved: Jan 18, 2024 | RLD: No | RS: No | Type: RX